FAERS Safety Report 19795259 (Version 1)
Quarter: 2021Q3

REPORT INFORMATION
  Report Type: Spontaneous
  Country: QA (occurrence: QA)
  Receive Date: 20210906
  Receipt Date: 20210906
  Transmission Date: 20211014
  Serious: No
  Sender: FDA-Public Use
  Company Number: QA-LUPIN PHARMACEUTICALS INC.-2021-16469

PATIENT
  Age: 26 Year
  Sex: Female

DRUGS (5)
  1. BUPIVACAINE. [Suspect]
     Active Substance: BUPIVACAINE
     Indication: EPIDURAL ANAESTHESIA
     Dosage: 10 MILLILITER
     Route: 008
  2. METOCLOPRAMIDE. [Suspect]
     Active Substance: METOCLOPRAMIDE
     Indication: PREMEDICATION
     Dosage: UNK
     Route: 065
  3. SODIUM CITRATE. [Suspect]
     Active Substance: SODIUM CITRATE
     Indication: PREMEDICATION
     Dosage: UNK
     Route: 065
  4. LABETALOL [Suspect]
     Active Substance: LABETALOL\LABETALOL HYDROCHLORIDE
     Indication: BLOOD PRESSURE MANAGEMENT
     Dosage: UNK
     Route: 065
  5. RINGERS SOLUTION [Suspect]
     Active Substance: CALCIUM CHLORIDE\POTASSIUM CHLORIDE\SODIUM CHLORIDE
     Indication: PRODUCT USED FOR UNKNOWN INDICATION
     Dosage: 1 LITER,DURING AND AFTER THE EPIDURAL PROCEDURE.
     Route: 042

REACTIONS (1)
  - Maternal exposure during pregnancy [Unknown]
